FAERS Safety Report 17291126 (Version 2)
Quarter: 2020Q1

REPORT INFORMATION
  Report Type: Spontaneous
  Country: TR (occurrence: TR)
  Receive Date: 20200121
  Receipt Date: 20200304
  Transmission Date: 20200409
  Serious: Yes (Other)
  Sender: FDA-Public Use
  Company Number: TR-BAYER-2020-008739

PATIENT
  Age: 27 Year
  Sex: Female
  Weight: 116.86 kg

DRUGS (2)
  1. AVELOX [Suspect]
     Active Substance: MOXIFLOXACIN HYDROCHLORIDE
     Dosage: 400 MG, ONCE
     Route: 048
     Dates: start: 202001, end: 202001
  2. NOTUSS [DIPHENHYDRAMINE HYDROCHLORIDE;DROPROPIZINE;PARACETAMOL;PSE [Concomitant]
     Dosage: UNK
     Dates: start: 20200110

REACTIONS (5)
  - Blindness transient [Recovering/Resolving]
  - Orthostatic hypotension [Recovering/Resolving]
  - Hyperhidrosis [Recovering/Resolving]
  - Nausea [Recovering/Resolving]
  - Vomiting [None]

NARRATIVE: CASE EVENT DATE: 202001
